FAERS Safety Report 8241460-8 (Version None)
Quarter: 2012Q1

REPORT INFORMATION
  Report Type: 
  Country: None (occurrence: None)
  Receive Date: 20120328
  Receipt Date: 20120316
  Transmission Date: 20120608
  Serious: Yes (Other)
  Sender: FDA-Public Use
  Company Number: CH-ELI_LILLY_AND_COMPANY-CH201203000614

PATIENT
  Age: 13 Year
  Sex: Male
  Weight: 67 kg

DRUGS (4)
  1. RITALIN [Concomitant]
     Indication: ATTENTION DEFICIT/HYPERACTIVITY DISORDER
     Dosage: UNK
     Dates: end: 20100514
  2. STRATTERA [Suspect]
     Indication: ATTENTION DEFICIT/HYPERACTIVITY DISORDER
     Dosage: 18 MG, UNKNOWN
     Dates: start: 20100330
  3. STRATTERA [Suspect]
     Dosage: 60 MG, QD
     Route: 048
     Dates: start: 20100421
  4. STRATTERA [Suspect]
     Dosage: 40 MG, UNKNOWN

REACTIONS (7)
  - SELF-INJURIOUS IDEATION [None]
  - SUICIDAL IDEATION [None]
  - TACHYCARDIA [None]
  - SUICIDAL BEHAVIOUR [None]
  - SUICIDE ATTEMPT [None]
  - INTENTIONAL SELF-INJURY [None]
  - IMPULSIVE BEHAVIOUR [None]
